FAERS Safety Report 18365607 (Version 1)
Quarter: 2020Q4

REPORT INFORMATION
  Report Type: Spontaneous
  Country: US (occurrence: US)
  Receive Date: 20201009
  Receipt Date: 20201009
  Transmission Date: 20210114
  Serious: No
  Sender: FDA-Public Use
  Company Number: US-SUNOVION-2020SUN002900

PATIENT
  Sex: Female

DRUGS (3)
  1. LUNESTA [Suspect]
     Active Substance: ESZOPICLONE
     Indication: INSOMNIA
     Dosage: 2 MG
     Route: 048
  2. LUNESTA [Suspect]
     Active Substance: ESZOPICLONE
     Indication: BIPOLAR DISORDER
  3. LUNESTA [Suspect]
     Active Substance: ESZOPICLONE
     Indication: HYPERSOMNIA
     Dosage: 2 MG
     Route: 048
     Dates: end: 202003

REACTIONS (3)
  - Insomnia [Unknown]
  - Maternal exposure during pregnancy [Unknown]
  - Emotional distress [Unknown]
